FAERS Safety Report 9662575 (Version 2)
Quarter: 2013Q4

REPORT INFORMATION
  Report Type: Spontaneous
  Country: US (occurrence: US)
  Receive Date: 20131031
  Receipt Date: 20131031
  Transmission Date: 20140711
  Serious: No
  Sender: FDA-Public Use
  Company Number: US-PURDUE-USA-2010-0063473

PATIENT
  Age: 76 Year
  Sex: Female
  Weight: 68.03 kg

DRUGS (10)
  1. OXYCONTIN (NDA 22-272) [Suspect]
     Indication: BACK PAIN
     Dosage: 20 MG, SEE TEXT
     Dates: start: 20100830
  2. OXYCONTIN (NDA 22-272) [Suspect]
     Indication: PAIN IN EXTREMITY
  3. OXYCONTIN (NDA 22-272) [Suspect]
     Indication: NECK PAIN
  4. LEVOTHYROXINE [Concomitant]
     Indication: THYROID DISORDER
  5. ASPIRIN [Concomitant]
     Indication: PRODUCT USED FOR UNKNOWN INDICATION
  6. VITAMIN D                          /00107901/ [Concomitant]
     Indication: PRODUCT USED FOR UNKNOWN INDICATION
  7. ZANTAC [Concomitant]
     Indication: PRODUCT USED FOR UNKNOWN INDICATION
  8. DIOVAN [Concomitant]
     Indication: CARDIAC DISORDER
     Dosage: 160 MG, DAILY
  9. SIMVASTATIN [Concomitant]
     Indication: BLOOD CHOLESTEROL
     Dosage: 80 MG, HS
  10. LEVOTHYROXINE [Concomitant]
     Indication: THYROID DISORDER
     Dosage: 60 MG, DAILY

REACTIONS (8)
  - Throat irritation [Not Recovered/Not Resolved]
  - Malaise [Not Recovered/Not Resolved]
  - Dyspepsia [Not Recovered/Not Resolved]
  - Abdominal distension [Not Recovered/Not Resolved]
  - Vomiting [Not Recovered/Not Resolved]
  - Headache [Not Recovered/Not Resolved]
  - Diarrhoea [Not Recovered/Not Resolved]
  - Nausea [Not Recovered/Not Resolved]
